FAERS Safety Report 12597207 (Version 1)
Quarter: 2016Q3

REPORT INFORMATION
  Report Type: Spontaneous
  Country: US (occurrence: US)
  Receive Date: 20160727
  Receipt Date: 20160727
  Transmission Date: 20161109
  Serious: Yes (Other)
  Sender: FDA-Public Use
  Company Number: US-SUN PHARMACEUTICAL INDUSTRIES LTD-2015US-108550

PATIENT
  Sex: Male
  Weight: 65.77 kg

DRUGS (1)
  1. TRAMADOL. [Suspect]
     Active Substance: TRAMADOL
     Indication: BACK PAIN
     Dosage: ONE TABLET ONE TO THREE TIMES A DAY
     Route: 065

REACTIONS (1)
  - Drug withdrawal syndrome [Recovered/Resolved]
